FAERS Safety Report 23814774 (Version 1)
Quarter: 2024Q2

REPORT INFORMATION
  Report Type: Other
  Country: US (occurrence: None)
  Receive Date: 20240503
  Receipt Date: 20240503
  Transmission Date: 20240716
  Serious: Yes (Death)
  Sender: FDA-Public Use
  Company Number: US-ROCHE-3419577

PATIENT
  Age: 76 Year
  Sex: Female

DRUGS (11)
  1. ACTEMRA [Suspect]
     Active Substance: TOCILIZUMAB
     Indication: Rheumatoid arthritis
     Route: 042
  2. ACTEMRA [Suspect]
     Active Substance: TOCILIZUMAB
     Indication: Antibody test positive
     Dosage: 200 MG SINGLE-USE VIAL
     Route: 042
     Dates: start: 20240109
  3. ACTEMRA [Suspect]
     Active Substance: TOCILIZUMAB
     Indication: Drug therapy
  4. RELAFEN [Concomitant]
     Active Substance: NABUMETONE
  5. PLAQUENIL [Concomitant]
     Active Substance: HYDROXYCHLOROQUINE SULFATE
  6. METHOTREXATE [Concomitant]
     Active Substance: METHOTREXATE
  7. LEUCOVORIN [Concomitant]
     Active Substance: LEUCOVORIN\LEUCOVORIN CALCIUM
  8. PREVACID [Concomitant]
     Active Substance: LANSOPRAZOLE
  9. RESTASIS [Concomitant]
     Active Substance: CYCLOSPORINE
  10. SALAGEN [Concomitant]
     Active Substance: PILOCARPINE HYDROCHLORIDE
  11. ZANAFLEX [Concomitant]
     Active Substance: TIZANIDINE HYDROCHLORIDE

REACTIONS (8)
  - Death [Fatal]
  - Arthralgia [Unknown]
  - Musculoskeletal stiffness [Unknown]
  - Alopecia [Unknown]
  - Denture wearer [Unknown]
  - Dizziness [Unknown]
  - Balance disorder [Unknown]
  - Muscle spasms [Unknown]
